FAERS Safety Report 21173675 (Version 1)
Quarter: 2022Q3

REPORT INFORMATION
  Report Type: Spontaneous
  Country: US (occurrence: US)
  Receive Date: 20220804
  Receipt Date: 20220804
  Transmission Date: 20221027
  Serious: No
  Sender: FDA-Public Use
  Company Number: US-PERRIGO-21US024712

PATIENT
  Sex: Male

DRUGS (2)
  1. LORATADINE [Suspect]
     Active Substance: LORATADINE
     Indication: Accidental exposure to product
     Dosage: 20 MG, ONCE AT 2000
     Route: 048
     Dates: start: 20210908, end: 20210908
  2. LORATADINE [Suspect]
     Active Substance: LORATADINE
     Dosage: 20 MG, ONCE AT 0800
     Route: 048
     Dates: start: 20210909, end: 20210909

REACTIONS (3)
  - Accidental overdose [Recovered/Resolved]
  - Accidental exposure to product [Recovered/Resolved]
  - Expired product administered [Recovered/Resolved]

NARRATIVE: CASE EVENT DATE: 20210908
